FAERS Safety Report 9639939 (Version 1)
Quarter: 2013Q4

REPORT INFORMATION
  Report Type: Spontaneous
  Country: US (occurrence: US)
  Receive Date: 20131023
  Receipt Date: 20131023
  Transmission Date: 20140711
  Serious: No
  Sender: FDA-Public Use
  Company Number: US-MYLANLABS-2013S1003280

PATIENT
  Age: 77 Year
  Sex: Male

DRUGS (1)
  1. CARBIDOPA AND LEVODOPA TABLETS USP [Suspect]
     Indication: PARKINSON^S DISEASE
     Route: 048
     Dates: start: 20130129, end: 20130208

REACTIONS (1)
  - Headache [Recovering/Resolving]
